FAERS Safety Report 8850193 (Version 4)
Quarter: 2013Q1

REPORT INFORMATION
  Report Type: Report from Study
  Country: DE (occurrence: DE)
  Receive Date: 20121019
  Receipt Date: 20130201
  Transmission Date: 20140127
  Serious: Yes (Hospitalization, Other)
  Sender: FDA-Public Use
  Company Number: DE-PFIZER INC-2012252687

PATIENT
  Age: 75 Year
  Sex: Male
  Weight: 74.5 kg

DRUGS (12)
  1. IRINOTECAN HCL [Suspect]
     Indication: GLIOBLASTOMA
     Dosage: 2X/WEEK
     Route: 042
     Dates: start: 20120810
  2. BEVACIZUMAB [Suspect]
     Indication: GLIOBLASTOMA
     Dosage: 2X/WEEK
     Route: 042
     Dates: start: 20120615
  3. SIMVASTATIN [Concomitant]
     Dosage: 0.5 DF, 1X/DAY (IN THE EVENING)
  4. METFORMIN HYDROCHLORIDE/SITAGLIPTIN PHOSPHATE [Concomitant]
     Dosage: 1 DF, 2X/DAY (850/50)
  5. OMEPRAZOLE [Concomitant]
     Dosage: 40 MG, 1X/DAY
  6. ONDANSETRON [Concomitant]
     Dosage: 4 MG, 2X/DAY
     Dates: start: 20120810
  7. DEXAMETHASONE [Concomitant]
     Dosage: 24 MG, UNK
     Dates: start: 20120507, end: 20120513
  8. DEXAMETHASONE [Concomitant]
     Dosage: 12 MG, UNK
     Dates: start: 20120514, end: 20120522
  9. DEXAMETHASONE [Concomitant]
     Dosage: 6 MG, UNK
     Dates: start: 20120707, end: 20120713
  10. PANTOZOL [Concomitant]
     Dosage: 40 MG, UNK
     Dates: start: 20120507
  11. DICLOFENAC [Concomitant]
     Dosage: 150 MG, UNK
     Dates: start: 20120707
  12. ATROPIN [Concomitant]
     Dosage: UNK
     Dates: start: 20120810

REACTIONS (1)
  - Bronchitis [Recovered/Resolved]
